FAERS Safety Report 5345210-4 (Version None)
Quarter: 2007Q2

REPORT INFORMATION
  Report Type: 
  Country: None (occurrence: None)
  Receive Date: 20070605
  Receipt Date: 20070524
  Transmission Date: 20071010
  Serious: Yes (Hospitalization, Other)
  Sender: FDA-Public Use
  Company Number: PHEH2007US08002

PATIENT
  Age: 17 Year
  Sex: Female
  Weight: 84.807 kg

DRUGS (11)
  1. TRILEPTAL [Suspect]
     Indication: BIPOLAR DISORDER
     Dosage: 150 MG, BID
     Route: 048
     Dates: start: 20050309, end: 20050312
  2. TRILEPTAL [Suspect]
     Dosage: 300 MG, BID
     Route: 048
     Dates: start: 20050313, end: 20050421
  3. CELEXA [Concomitant]
     Dosage: 40 MG, BID
     Route: 048
     Dates: end: 20050418
  4. CELEXA [Concomitant]
     Dosage: 20 MG, QD
     Route: 048
     Dates: start: 20050418, end: 20050419
  5. CELEXA [Concomitant]
     Dosage: 40 MG, QD
     Route: 048
     Dates: start: 20050419
  6. AMOXICILLIN [Suspect]
     Indication: STREPTOCOCCAL INFECTION
     Dates: start: 20050404, end: 20050412
  7. ADVAIR DISKUS 100/50 [Concomitant]
     Dosage: 100/50, ONE PUFF DAILY
     Dates: start: 20050428
  8. ADVAIR DISKUS 100/50 [Concomitant]
     Dosage: 100/50, ONE PUFF TWICE A DAY
     Dates: end: 20050428
  9. FLONASE [Concomitant]
     Dosage: 50 MCG, 1 SPRAY EACH NOSTRIL, QD
     Dates: start: 20050428
  10. FLONASE [Concomitant]
     Dosage: 2 SPRAYS IN EACH NOSTRIL DAILY
     Dates: end: 20050428
  11. ADDERALL 10 [Concomitant]
     Dosage: UNK, UNK

REACTIONS (50)
  - ABDOMINAL PAIN [None]
  - ACUTE HEPATIC FAILURE [None]
  - ALANINE AMINOTRANSFERASE INCREASED [None]
  - AMMONIA INCREASED [None]
  - ASPARTATE AMINOTRANSFERASE INCREASED [None]
  - BLOOD ALBUMIN INCREASED [None]
  - BLOOD ALKALINE PHOSPHATASE INCREASED [None]
  - BLOOD BILIRUBIN INCREASED [None]
  - BLOOD CHLORIDE INCREASED [None]
  - BLOOD CREATININE INCREASED [None]
  - BLOOD LACTATE DEHYDROGENASE INCREASED [None]
  - BLOOD OSMOLARITY DECREASED [None]
  - BLOOD UREA INCREASED [None]
  - CARBON DIOXIDE DECREASED [None]
  - CHILLS [None]
  - COAGULOPATHY [None]
  - COUGH [None]
  - DEHYDRATION [None]
  - DERMATITIS ALLERGIC [None]
  - DIARRHOEA [None]
  - EOSINOPHILIA [None]
  - ERUCTATION [None]
  - FLATULENCE [None]
  - GAMMA-GLUTAMYLTRANSFERASE INCREASED [None]
  - GASTROENTERITIS [None]
  - HEADACHE [None]
  - HEPATIC ENCEPHALOPATHY [None]
  - HEPATITIS [None]
  - LEUKOCYTOSIS [None]
  - LYMPHOCYTE COUNT DECREASED [None]
  - MALAISE [None]
  - MONOCYTE COUNT INCREASED [None]
  - NASAL CONGESTION [None]
  - NAUSEA [None]
  - NEPHRITIS [None]
  - NEUTROPHIL COUNT INCREASED [None]
  - PROTEIN TOTAL DECREASED [None]
  - PRURITUS GENERALISED [None]
  - PYREXIA [None]
  - RENAL FAILURE ACUTE [None]
  - RENAL TUBULAR DISORDER [None]
  - SCARLET FEVER [None]
  - STREPTOCOCCAL INFECTION [None]
  - ULTRASOUND ABDOMEN ABNORMAL [None]
  - URINE ANALYSIS ABNORMAL [None]
  - URINE OUTPUT DECREASED [None]
  - URTICARIA [None]
  - VOMITING [None]
  - WEIGHT DECREASED [None]
  - WHITE BLOOD CELL COUNT INCREASED [None]
